FAERS Safety Report 25029272 (Version 1)
Quarter: 2025Q1

REPORT INFORMATION
  Report Type: Spontaneous
  Country: GB (occurrence: GB)
  Receive Date: 20250303
  Receipt Date: 20250303
  Transmission Date: 20250408
  Serious: Yes (Other)
  Sender: TEVA
  Company Number: GB-MHRA-TPP58164050C10051673YC1740150772066

PATIENT
  Age: 22 Year
  Sex: Female
  Weight: 57 kg

DRUGS (7)
  1. DOXYCYCLINE [Suspect]
     Active Substance: DOXYCYCLINE
     Indication: Ill-defined disorder
     Route: 065
     Dates: start: 20250221
  2. METRONIDAZOLE [Concomitant]
     Active Substance: METRONIDAZOLE
     Indication: Ill-defined disorder
     Route: 065
     Dates: start: 20250123, end: 20250130
  3. DOXYCYCLINE [Concomitant]
     Active Substance: DOXYCYCLINE
     Indication: Ill-defined disorder
     Route: 065
     Dates: start: 20250123, end: 20250220
  4. GEDAREL [Concomitant]
     Indication: Ill-defined disorder
     Dosage: ONE TABLET DAILY FOR 21 DAYS; SUBSEQUENT COURSE...
     Route: 065
     Dates: start: 20240307
  5. CODEINE PHOSPHATE [Concomitant]
     Active Substance: CODEINE PHOSPHATE
     Indication: Ill-defined disorder
     Dosage: TAKE ONE TABLET UPTO FOUR TIMES DAILY, FOR PAIN
     Route: 065
     Dates: start: 20250127
  6. AMITRIPTYLINE HYDROCHLORIDE [Concomitant]
     Active Substance: AMITRIPTYLINE HYDROCHLORIDE
     Indication: Ill-defined disorder
     Dosage: ONE TABLET AT NIGHT FOR PAIN. AFTER ONE WEEK IF...
     Route: 065
     Dates: start: 20241218, end: 20250115
  7. MIRTAZAPINE [Concomitant]
     Active Substance: MIRTAZAPINE
     Indication: Ill-defined disorder
     Dosage: ONE TABLET AT NIGHT FOR ANXIETY / DEPRESSION
     Route: 065
     Dates: start: 20241231

REACTIONS (1)
  - Gastric ulcer [Recovering/Resolving]

NARRATIVE: CASE EVENT DATE: 20250221
